FAERS Safety Report 13330411 (Version 2)
Quarter: 2017Q2

REPORT INFORMATION
  Report Type: Report from Study
  Country: JP (occurrence: JP)
  Receive Date: 20170314
  Receipt Date: 20170405
  Transmission Date: 20170830
  Serious: No
  Sender: FDA-Public Use
  Company Number: JP-AMGEN-JPNSP2017036945

PATIENT
  Age: 46 Year
  Sex: Male
  Weight: 83 kg

DRUGS (16)
  1. AMG 145 [Suspect]
     Active Substance: EVOLOCUMAB
     Indication: TYPE IIA HYPERLIPIDAEMIA
     Dosage: 140 MG, Q2WK
     Route: 058
     Dates: start: 20160610
  2. CARVEDILOL. [Concomitant]
     Active Substance: CARVEDILOL
     Dosage: 7.5 MG, QD
     Route: 048
  3. AMARYL [Concomitant]
     Active Substance: GLIMEPIRIDE
     Dosage: 1 MG, QD
     Route: 048
  4. AMG 145 [Suspect]
     Active Substance: EVOLOCUMAB
     Dosage: 140 MG, Q2WK
     Route: 058
     Dates: start: 20160919
  5. RABEPRAZOLE [Concomitant]
     Active Substance: RABEPRAZOLE
     Dosage: 10 MG, QD
     Route: 048
  6. FRANDOL [Concomitant]
     Active Substance: ISOSORBIDE DINITRATE
     Dosage: 40 MG, QD
  7. FUROSEMIDE. [Concomitant]
     Active Substance: FUROSEMIDE
     Dosage: 40 MG, QD
     Route: 048
  8. MAGNESIUM OXIDE. [Concomitant]
     Active Substance: MAGNESIUM OXIDE
     Dosage: 990 MG, QD
     Route: 048
  9. BAYASPIRIN [Concomitant]
     Active Substance: ASPIRIN
     Dosage: 100 MG, QD
     Route: 048
  10. SELARA [Concomitant]
     Active Substance: EPLERENONE
     Dosage: 50 MG, QD
     Route: 048
  11. PLAVIX [Concomitant]
     Active Substance: CLOPIDOGREL BISULFATE
     Dosage: 75 MG, QD
     Route: 048
  12. ISOSORBIDE DINITRATE. [Concomitant]
     Active Substance: ISOSORBIDE DINITRATE
     Dosage: 40 MG, QD
     Route: 048
  13. TENELIA [Concomitant]
     Active Substance: TENELIGLIPTIN
     Dosage: 20 MG, QD
     Route: 048
  14. LIVALO [Concomitant]
     Active Substance: PITAVASTATIN CALCIUM
     Dosage: 2 MG, 2 TABLETS QD
     Dates: start: 201604
  15. DIGOXIN. [Concomitant]
     Active Substance: DIGOXIN
     Dosage: 0.125 MG, QD
     Route: 048
  16. WARFARIN [Concomitant]
     Active Substance: WARFARIN
     Dosage: 5 MG, QD
     Route: 048

REACTIONS (2)
  - Angina pectoris [Recovered/Resolved]
  - Diabetes mellitus [Not Recovered/Not Resolved]

NARRATIVE: CASE EVENT DATE: 20161124
